FAERS Safety Report 8994076 (Version 2)
Quarter: 2013Q1

REPORT INFORMATION
  Report Type: Spontaneous
  Country: US (occurrence: US)
  Receive Date: 20130102
  Receipt Date: 20130204
  Transmission Date: 20140127
  Serious: No
  Sender: FDA-Public Use
  Company Number: US-AMGEN-USASP2012082328

PATIENT
  Age: 59 Year
  Sex: Female

DRUGS (2)
  1. ENBREL [Suspect]
     Indication: PSORIATIC ARTHROPATHY
     Dosage: 50 MG, BI-WEEKLY
     Dates: start: 20080605, end: 2010
  2. ENBREL [Suspect]
     Indication: PSORIASIS

REACTIONS (1)
  - Arthritis [Not Recovered/Not Resolved]
